FAERS Safety Report 13984536 (Version 2)
Quarter: 2017Q3

REPORT INFORMATION
  Report Type: Report from Study
  Country: ES (occurrence: ES)
  Receive Date: 20170918
  Receipt Date: 20170922
  Transmission Date: 20171128
  Serious: Yes (Hospitalization, Other)
  Sender: FDA-Public Use
  Company Number: ES-009507513-1709ESP006795

PATIENT
  Age: 59 Year
  Sex: Female

DRUGS (2)
  1. ORVATEZ 10 MG/20 MG COMPRIMIDOS RECUBIERTOS CON PELICULA [Suspect]
     Active Substance: ATORVASTATIN CALCIUM\EZETIMIBE
     Indication: DYSLIPIDAEMIA
     Dosage: 10/20 MG (1 IN 1 D)
     Route: 048
     Dates: start: 20160809
  2. EUTIROX [Concomitant]
     Active Substance: LEVOTHYROXINE SODIUM
     Indication: HYPOTHYROIDISM
     Dosage: 50 MCG (1 IN 1 D)
     Route: 048
     Dates: start: 20130101

REACTIONS (2)
  - Pancreatitis acute [Recovered/Resolved]
  - Biliary colic [Recovered/Resolved]

NARRATIVE: CASE EVENT DATE: 20170206
